FAERS Safety Report 19406581 (Version 1)
Quarter: 2021Q2

REPORT INFORMATION
  Report Type: Report from Study
  Country: DE (occurrence: DE)
  Receive Date: 20210611
  Receipt Date: 20210611
  Transmission Date: 20210717
  Serious: Yes (Other)
  Sender: FDA-Public Use
  Company Number: DE-ROCHE-2843279

PATIENT
  Age: 72 Year
  Sex: Female

DRUGS (6)
  1. VENETOCLAX. [Suspect]
     Active Substance: VENETOCLAX
     Indication: MALIGNANT LYMPHOID NEOPLASM
     Dosage: LAST DOSE ADMINISTERED ON 20/OCT/2020
     Route: 065
     Dates: start: 20200716
  2. MAGNESIUM [Concomitant]
     Active Substance: MAGNESIUM
     Route: 048
     Dates: start: 201805
  3. OBINUTUZUMAB. [Suspect]
     Active Substance: OBINUTUZUMAB
     Indication: MALIGNANT LYMPHOID NEOPLASM
     Dosage: LAST DOSE ADMINISTERED ON 22/AUG/2020
     Route: 042
     Dates: start: 20200513
  4. ACALABRUTINIB. [Suspect]
     Active Substance: ACALABRUTINIB
     Indication: MALIGNANT LYMPHOID NEOPLASM
     Dosage: LAST DOSE ADMINISTERED ON 12/NOV/2020
     Route: 065
     Dates: start: 20200610
  5. L?THYROXINE [Concomitant]
     Active Substance: LEVOTHYROXINE
     Route: 048
     Dates: start: 1987
  6. NEBILET [Concomitant]
     Active Substance: NEBIVOLOL
     Route: 048
     Dates: start: 201501

REACTIONS (3)
  - Pyrexia [Not Recovered/Not Resolved]
  - Groin abscess [Not Recovered/Not Resolved]
  - Infection [Not Recovered/Not Resolved]

NARRATIVE: CASE EVENT DATE: 20210520
